FAERS Safety Report 6260304 (Version 6)
Quarter: 2019Q3

REPORT INFORMATION
  Report Type: Spontaneous
  Country: GB (occurrence: GB)
  Receive Date: 20070313
  Receipt Date: 20190807
  Transmission Date: 20191005
  Serious: Yes (Death, Hospitalization, Other)
  Sender: FDA-Public Use
  Company Number: GB-ELI_LILLY_AND_COMPANY-GB200702005579

PATIENT
  Age: 79 Year
  Sex: Male
  Weight: 100 kg

DRUGS (10)
  1. DIGOXIN. [Concomitant]
     Active Substance: DIGOXIN
     Indication: ATRIAL FIBRILLATION
     Dosage: 250 UG, DAILY (1/D)
     Route: 048
     Dates: start: 1999
  2. PRAZOSIN. [Concomitant]
     Active Substance: PRAZOSIN
     Indication: BLOOD PRESSURE INCREASED
     Dosage: 1 MG, DAILY (1/D)
     Route: 048
  3. WARFARIN [Concomitant]
     Active Substance: WARFARIN
     Indication: ATRIAL FIBRILLATION
     Dosage: UNK UNK, UNKNOWN
     Route: 048
     Dates: start: 1998
  4. CO-DYDRAMOL [Concomitant]
     Active Substance: ACETAMINOPHEN\DIHYDROCODEINE
     Indication: ARTHRITIS
     Dosage: UNK UNK, UNKNOWN
     Route: 048
     Dates: start: 1998
  5. CO-DYDRAMOL [Concomitant]
     Active Substance: ACETAMINOPHEN\DIHYDROCODEINE
     Dosage: 2 DOSAGE FORM
     Route: 048
  6. FOLIC ACID. [Concomitant]
     Active Substance: FOLIC ACID
     Indication: PRODUCT USED FOR UNKNOWN INDICATION
     Dosage: 5 G, WEEKLY (1/W)
     Route: 065
  7. SULFASALAZINE. [Concomitant]
     Active Substance: SULFASALAZINE
     Indication: PRODUCT USED FOR UNKNOWN INDICATION
     Dosage: 1000 MG, DAILY
     Route: 065
  8. WARFARIN [Concomitant]
     Active Substance: WARFARIN
     Dosage: VARIABLE DOSE.
     Route: 048
  9. METHOTREXATE. [Suspect]
     Active Substance: METHOTREXATE
     Indication: SERONEGATIVE ARTHRITIS
     Dosage: 5 MG, WEEKLY (1/W)
     Route: 065
     Dates: start: 20000710
  10. FLUOXETINE [Suspect]
     Active Substance: FLUOXETINE HYDROCHLORIDE
     Indication: DEPRESSION
     Dosage: 30 MG, DAILY
     Route: 048
     Dates: start: 20060808

REACTIONS (4)
  - Left ventricular failure [Fatal]
  - Rheumatoid arthritis [Unknown]
  - Pneumonia [Fatal]
  - Pulmonary fibrosis [Fatal]
